FAERS Safety Report 9323626 (Version 1)
Quarter: 2013Q2

REPORT INFORMATION
  Report Type: Spontaneous
  Country: IT (occurrence: IT)
  Receive Date: 20130603
  Receipt Date: 20130603
  Transmission Date: 20140414
  Serious: Yes (Other)
  Sender: FDA-Public Use
  Company Number: IT-JNJFOC-20130520409

PATIENT
  Age: 51 Year
  Sex: Male

DRUGS (2)
  1. CONTRAMAL [Suspect]
     Indication: BACK PAIN
     Route: 048
     Dates: start: 20130507, end: 20130508
  2. NICETILE [Concomitant]
     Indication: BACK PAIN
     Route: 048

REACTIONS (2)
  - Malaise [Recovering/Resolving]
  - Vertigo [Recovering/Resolving]
